FAERS Safety Report 4738291-X (Version None)
Quarter: 2005Q3

REPORT INFORMATION
  Report Type: 
  Country: None (occurrence: None)
  Receive Date: 20050805
  Receipt Date: 20050805
  Transmission Date: 20060218
  Serious: No
  Sender: FDA-Public Use
  Company Number: None

PATIENT

DRUGS (1)
  1. TUBERSOL [Suspect]
     Indication: TUBERCULIN TEST
     Dosage: 0.5 ML  INTRADERMAL
     Route: 023
     Dates: start: 20050712

REACTIONS (2)
  - HEPATITIS C [None]
  - PHARMACEUTICAL PRODUCT COMPLAINT [None]
